FAERS Safety Report 14545175 (Version 1)
Quarter: 2018Q1

REPORT INFORMATION
  Report Type: Spontaneous
  Country: US (occurrence: US)
  Receive Date: 20180218
  Receipt Date: 20180218
  Transmission Date: 20180509
  Serious: No
  Sender: FDA-Public Use
  Company Number: US-IPSEN BIOPHARMACEUTICALS, INC.-2017-00318

PATIENT
  Age: 60 Year
  Sex: Female
  Weight: 52 kg

DRUGS (6)
  1. ESTROGEN PATCH [Concomitant]
     Active Substance: ESTRADIOL
  2. DYSPORT [Suspect]
     Active Substance: ABOBOTULINUMTOXINA
     Indication: SKIN WRINKLING
  3. CRANBERRY EXTRACT [Concomitant]
     Active Substance: CRANBERRY JUICE
     Indication: SKIN WRINKLING
  4. DYSPORT [Suspect]
     Active Substance: ABOBOTULINUMTOXINA
     Indication: SKIN WRINKLING
     Dosage: NOT REPORTED
     Dates: start: 201501, end: 201501
  5. SCULPTRA AESTHETIC [Suspect]
     Active Substance: POLYLACTIDE, L-
     Indication: PRODUCT USED FOR UNKNOWN INDICATION
     Dates: start: 201202, end: 2014
  6. CRANBERRY EXTRACT [Concomitant]
     Active Substance: CRANBERRY JUICE
     Indication: SKIN WRINKLING

REACTIONS (2)
  - Reduced facial expression [Not Recovered/Not Resolved]
  - Patient dissatisfaction with treatment [Unknown]

NARRATIVE: CASE EVENT DATE: 201501
